FAERS Safety Report 7839490-0 (Version None)
Quarter: 2011Q4

REPORT INFORMATION
  Report Type: 
  Country: None (occurrence: None)
  Receive Date: 20111025
  Receipt Date: 20111012
  Transmission Date: 20120403
  Serious: Yes (Hospitalization)
  Sender: FDA-Public Use
  Company Number: US-RANBAXY-2011RR-49554

PATIENT
  Age: 55 Year
  Sex: Male

DRUGS (7)
  1. MACROBID [Suspect]
     Indication: URINARY TRACT INFECTION
     Dosage: UNK
     Route: 065
  2. LEVAQUIN [Suspect]
     Indication: PROSTATITIS
  3. LEVAQUIN [Suspect]
     Indication: URINARY TRACT INFECTION
     Dosage: UNK
     Route: 065
  4. MACROBID [Suspect]
     Indication: PROSTATITIS
  5. DOXYCYCLINE [Suspect]
     Indication: URINARY TRACT INFECTION
     Dosage: UNK
     Route: 065
  6. DOXYCYCLINE [Suspect]
     Indication: PROSTATITIS
  7. AMOXICILLIN [Concomitant]
     Indication: PRODUCT USED FOR UNKNOWN INDICATION
     Dosage: UNK
     Route: 065

REACTIONS (4)
  - CHILLS [None]
  - PYREXIA [None]
  - DYSURIA [None]
  - WHITE BLOOD CELL COUNT INCREASED [None]
